FAERS Safety Report 4275400-3 (Version None)
Quarter: 2004Q1

REPORT INFORMATION
  Report Type: 
  Country: None (occurrence: None)
  Receive Date: 20040116
  Receipt Date: 20040112
  Transmission Date: 20041129
  Serious: Yes (Hospitalization)
  Sender: FDA-Public Use
  Company Number: TPA2004A00037

PATIENT
  Age: 61 Year
  Sex: Female
  Weight: 112.4921 kg

DRUGS (5)
  1. ACTOS [Suspect]
     Indication: DIABETES MELLITUS NON-INSULIN-DEPENDENT
     Dosage: 1 IN 1 D, PER ORAL
     Route: 048
     Dates: start: 20000101
  2. AMARYL [Concomitant]
  3. LISINOPRIL [Concomitant]
  4. GENERIC LOPRESSOR (METOPROLOL TARTRATE) [Concomitant]
  5. HYDROCHLOROTHIAZIDE [Concomitant]

REACTIONS (6)
  - BLOOD CHOLESTEROL INCREASED [None]
  - CEREBROVASCULAR ACCIDENT [None]
  - DIFFICULTY IN WALKING [None]
  - EXTRASYSTOLES [None]
  - GAIT DISTURBANCE [None]
  - URINE OUTPUT INCREASED [None]
